FAERS Safety Report 4730239-7 (Version None)
Quarter: 2005Q3

REPORT INFORMATION
  Report Type: 
  Country: None (occurrence: None)
  Receive Date: 20050728
  Receipt Date: 20050715
  Transmission Date: 20060218
  Serious: Yes (Hospitalization)
  Sender: FDA-Public Use
  Company Number: 2005103109

PATIENT
  Age: 69 Year
  Sex: Male

DRUGS (1)
  1. ZITHROMAX [Suspect]
     Indication: PNEUMONIA
     Dosage: ORAL
     Route: 048
     Dates: start: 20050712, end: 20050714

REACTIONS (4)
  - HAEMOLYTIC ANAEMIA [None]
  - LIVER DISORDER [None]
  - RASH [None]
  - VIRAL INFECTION [None]
